FAERS Safety Report 6840383-6 (Version None)
Quarter: 2010Q3

REPORT INFORMATION
  Report Type: 
  Country: None (occurrence: None)
  Receive Date: 20100714
  Receipt Date: 20100706
  Transmission Date: 20110219
  Serious: Yes (Hospitalization)
  Sender: FDA-Public Use
  Company Number: JP-BRISTOL-MYERS SQUIBB COMPANY-15171846

PATIENT
  Age: 74 Year
  Sex: Male
  Weight: 40 kg

DRUGS (6)
  1. ABILIFY [Suspect]
     Indication: SENILE PSYCHOSIS
     Dosage: 6MG/D; 14APR-21JUN2010(69D) 3MG ORAL QD 22JUN10-ONGOING
     Route: 048
     Dates: start: 20100414
  2. ABILIFY [Suspect]
     Indication: HALLUCINATION
     Dosage: 6MG/D; 14APR-21JUN2010(69D) 3MG ORAL QD 22JUN10-ONGOING
     Route: 048
     Dates: start: 20100414
  3. ABILIFY [Suspect]
     Indication: DELUSION
     Dosage: 6MG/D; 14APR-21JUN2010(69D) 3MG ORAL QD 22JUN10-ONGOING
     Route: 048
     Dates: start: 20100414
  4. URIEF [Concomitant]
     Indication: HYPERTENSION
     Dosage: TABS
  5. AMLODIPINE BESYLATE [Concomitant]
     Indication: HYPERTENSION
  6. YOKUKANSAN [Concomitant]
     Dates: start: 20100420

REACTIONS (1)
  - ILEUS [None]
